FAERS Safety Report 21002656 (Version 1)
Quarter: 2022Q2

REPORT INFORMATION
  Report Type: Spontaneous
  Country: US (occurrence: US)
  Receive Date: 20220624
  Receipt Date: 20220624
  Transmission Date: 20220720
  Serious: No
  Sender: FDA-Public Use
  Company Number: US-BioHaven Pharmaceuticals-2022BHV001401

PATIENT
  Age: 61 Year
  Sex: Female

DRUGS (3)
  1. NURTEC ODT [Suspect]
     Active Substance: RIMEGEPANT SULFATE
     Indication: Headache
     Dosage: SHE STARTED ON NURTEC LAST YEAR SOMETIME IN JUNE 2021 AND STOPPED IT SHORTLY AFTER SINCE SHE WAS GOI
     Route: 065
     Dates: start: 202106, end: 2021
  2. NURTEC ODT [Suspect]
     Active Substance: RIMEGEPANT SULFATE
     Dosage: PATIENT RESTARTED THE NURTEC RECENTLY THIS YEAR A FEW WEEKS AGO. PATIENT TOOK ONE DOSE IN THE MORNIN
     Route: 065
     Dates: start: 202205
  3. ADVIL [Concomitant]
     Active Substance: IBUPROFEN
     Indication: Headache
     Route: 065
     Dates: start: 20220514

REACTIONS (2)
  - Drug ineffective [Recovered/Resolved]
  - Inappropriate schedule of product administration [Recovered/Resolved]

NARRATIVE: CASE EVENT DATE: 20220514
